FAERS Safety Report 8232189-0 (Version None)
Quarter: 2012Q1

REPORT INFORMATION
  Report Type: 
  Country: None (occurrence: None)
  Receive Date: 20120323
  Receipt Date: 20120314
  Transmission Date: 20120608
  Serious: Yes (Other)
  Sender: FDA-Public Use
  Company Number: DK-NOVOPROD-347420

PATIENT
  Age: 66 Year
  Sex: Male
  Weight: 116 kg

DRUGS (5)
  1. CENTYL MED KALIUMKLORID [Concomitant]
     Indication: HYPERTENSION
     Dosage: UNK
     Route: 048
     Dates: start: 20090203
  2. SIMVASTATIN [Concomitant]
     Dosage: UNK
     Route: 048
     Dates: start: 20101110, end: 20111212
  3. WARFARIN SODIUM [Concomitant]
     Indication: DEEP VEIN THROMBOSIS
     Dosage: UNK
     Route: 048
     Dates: start: 20110412, end: 20111121
  4. METFORMIN HCL [Concomitant]
     Indication: DIABETES MELLITUS
     Dosage: UNK
     Route: 048
     Dates: start: 20080821
  5. VICTOZA [Suspect]
     Dosage: UNK
     Route: 058
     Dates: start: 20090922, end: 20111209

REACTIONS (3)
  - PANCREATITIS CHRONIC [None]
  - PANCREATIC PSEUDOCYST [None]
  - PANCREATITIS ACUTE [None]
